FAERS Safety Report 14765522 (Version 1)
Quarter: 2018Q2

REPORT INFORMATION
  Report Type: Spontaneous
  Country: AU (occurrence: AU)
  Receive Date: 20180416
  Receipt Date: 20180416
  Transmission Date: 20180711
  Serious: Yes (Hospitalization)
  Sender: FDA-Public Use
  Company Number: AU-B.I. PHARMACEUTICALS,INC./RIDGEFIELD-2018-BI-020267

PATIENT
  Age: 64 Year
  Sex: Male
  Weight: 55 kg

DRUGS (1)
  1. JARDIANCE [Suspect]
     Active Substance: EMPAGLIFLOZIN
     Indication: PRODUCT USED FOR UNKNOWN INDICATION
     Route: 048
     Dates: start: 20170212, end: 20170215

REACTIONS (6)
  - Ketoacidosis [Not Recovered/Not Resolved]
  - Hypovolaemia [Not Recovered/Not Resolved]
  - Polyuria [Not Recovered/Not Resolved]
  - Hypotension [Not Recovered/Not Resolved]
  - Pneumonia [Unknown]
  - Metabolic acidosis [Not Recovered/Not Resolved]

NARRATIVE: CASE EVENT DATE: 20170215
